FAERS Safety Report 6212188-0 (Version None)
Quarter: 2009Q2

REPORT INFORMATION
  Report Type: 
  Country: None (occurrence: None)
  Receive Date: 20090602
  Receipt Date: 20090520
  Transmission Date: 20091009
  Serious: Yes (Hospitalization)
  Sender: FDA-Public Use
  Company Number: PHHY2009NZ19514

PATIENT
  Sex: Female

DRUGS (1)
  1. CLOZARIL [Suspect]
     Indication: SCHIZOPHRENIA
     Dosage: 125 MG - 150 MG DAILY
     Dates: start: 20090429

REACTIONS (6)
  - CHOLECYSTECTOMY [None]
  - CHOLECYSTITIS [None]
  - CONFUSIONAL STATE [None]
  - MALAISE [None]
  - PSYCHOTIC DISORDER [None]
  - PYREXIA [None]
